FAERS Safety Report 4283601-3 (Version None)
Quarter: 2004Q1

REPORT INFORMATION
  Report Type: 
  Country: None (occurrence: None)
  Receive Date: 20040129
  Receipt Date: 20040129
  Transmission Date: 20041129
  Serious: Yes (Death)
  Sender: FDA-Public Use
  Company Number: None

PATIENT
  Sex: Male
  Weight: 29.4838 kg

DRUGS (4)
  1. PREDNISONE [Suspect]
     Indication: CONVULSION
     Dosage: 200 MG PO BID
     Route: 048
     Dates: start: 20021201, end: 20030424
  2. VALPROIC ACID [Concomitant]
  3. ZONEGRAN [Concomitant]
  4. KEPPRA [Concomitant]

REACTIONS (4)
  - BLOOD GLUCOSE INCREASED [None]
  - CONVULSION [None]
  - DIABETIC KETOACIDOSIS [None]
  - MEDICATION ERROR [None]
